FAERS Safety Report 12186787 (Version 2)
Quarter: 2016Q2

REPORT INFORMATION
  Report Type: Spontaneous
  Country: US (occurrence: US)
  Receive Date: 20160317
  Receipt Date: 20160408
  Transmission Date: 20160815
  Serious: No
  Sender: FDA-Public Use
  Company Number: US-PFIZER INC-2016145457

PATIENT
  Age: 59 Year
  Sex: Female
  Weight: 57 kg

DRUGS (3)
  1. GABAPENTIN. [Suspect]
     Active Substance: GABAPENTIN
     Indication: NEUROPATHY PERIPHERAL
     Dosage: 300 MG, 1X/DAY
     Route: 048
     Dates: start: 20160203, end: 20160208
  2. GABAPENTIN. [Suspect]
     Active Substance: GABAPENTIN
     Indication: NERVE INJURY
     Dosage: 1200 MG, 1X/DAY
     Route: 048
     Dates: start: 20160303
  3. GABAPENTIN. [Suspect]
     Active Substance: GABAPENTIN
     Indication: FIBROMYALGIA
     Dosage: 600 MG, DAILY
     Route: 048

REACTIONS (8)
  - Pruritus [Unknown]
  - Trigeminal nerve disorder [Unknown]
  - Local swelling [Unknown]
  - Drug ineffective for unapproved indication [Not Recovered/Not Resolved]
  - Hypotension [Unknown]
  - Drug hypersensitivity [Unknown]
  - Rash [Unknown]
  - Heart rate increased [Unknown]

NARRATIVE: CASE EVENT DATE: 20160111
